FAERS Safety Report 25059359 (Version 1)
Quarter: 2025Q1

REPORT INFORMATION
  Report Type: Spontaneous
  Country: FR (occurrence: FR)
  Receive Date: 20250310
  Receipt Date: 20250310
  Transmission Date: 20250408
  Serious: Yes (Death, Hospitalization, Other)
  Sender: AMGEN
  Company Number: FR-AMGEN-FRASP2025044432

PATIENT

DRUGS (2)
  1. BEVACIZUMAB [Suspect]
     Active Substance: BEVACIZUMAB
     Indication: Neoplasm malignant
     Route: 065
  2. PANITUMUMAB [Suspect]
     Active Substance: PANITUMUMAB
     Indication: Product used for unknown indication
     Route: 065

REACTIONS (18)
  - Gastroduodenal ulcer [Fatal]
  - Disease progression [Fatal]
  - Hepatotoxicity [Unknown]
  - Device related thrombosis [Unknown]
  - Metastasis [Unknown]
  - Device related sepsis [Unknown]
  - Cholangitis [Unknown]
  - Metastases to liver [Unknown]
  - Complication of device insertion [Unknown]
  - Systemic toxicity [Unknown]
  - Catheter site inflammation [Unknown]
  - Device leakage [Unknown]
  - Device related infection [Unknown]
  - Arteritis [Unknown]
  - Catheter site haematoma [Unknown]
  - Off label use [Unknown]
  - Wound dehiscence [Unknown]
  - General physical health deterioration [Unknown]
